FAERS Safety Report 5426802-0 (Version None)
Quarter: 2007Q3

REPORT INFORMATION
  Report Type: 
  Country: None (occurrence: None)
  Receive Date: 20070827
  Receipt Date: 20070403
  Transmission Date: 20080115
  Serious: No
  Sender: FDA-Public Use
  Company Number: US-BOEHRINGER INGELHEIM PHARMACEUTICALS, INC.-2007-BP-04630BP

PATIENT
  Sex: Male

DRUGS (7)
  1. CATAPRES-TTS-1 [Suspect]
     Indication: HYPERTENSION
     Route: 062
     Dates: start: 20061201
  2. VASOTEC [Concomitant]
     Indication: HYPERTENSION
  3. AMBIEN [Concomitant]
     Indication: INSOMNIA
  4. LEXAPRO [Concomitant]
     Indication: ANXIETY
  5. WELLBUTRIN [Concomitant]
     Indication: DEPRESSION
  6. SINGULAIR [Concomitant]
  7. BACLOFEN [Concomitant]
     Indication: MUSCLE RELAXANT THERAPY

REACTIONS (3)
  - APPLICATION SITE PRURITUS [None]
  - APPLICATION SITE RASH [None]
  - APPLICATION SITE VESICLES [None]
